FAERS Safety Report 22061564 (Version 2)
Quarter: 2023Q1

REPORT INFORMATION
  Report Type: Report from Study
  Country: IL (occurrence: IL)
  Receive Date: 20230304
  Receipt Date: 20230317
  Transmission Date: 20230418
  Serious: Yes (Hospitalization)
  Sender: FDA-Public Use
  Company Number: IL-ABBVIE-21K-082-3988538-00

PATIENT
  Age: 69 Year
  Sex: Female

DRUGS (27)
  1. VENETOCLAX [Suspect]
     Active Substance: VENETOCLAX
     Indication: Acute myeloid leukaemia
     Route: 048
     Dates: start: 20210304, end: 20210305
  2. VENETOCLAX [Suspect]
     Active Substance: VENETOCLAX
     Indication: Acute myeloid leukaemia
     Route: 048
     Dates: start: 20210306, end: 20210331
  3. VENETOCLAX [Suspect]
     Active Substance: VENETOCLAX
     Indication: Acute myeloid leukaemia
     Route: 048
     Dates: start: 20210411, end: 20210503
  4. VENETOCLAX [Suspect]
     Active Substance: VENETOCLAX
     Indication: Acute myeloid leukaemia
     Route: 048
     Dates: start: 20210516, end: 20220530
  5. VENETOCLAX [Suspect]
     Active Substance: VENETOCLAX
     Indication: Acute myeloid leukaemia
     Route: 048
     Dates: start: 20220619
  6. AZACITIDINE [Suspect]
     Active Substance: AZACITIDINE
     Indication: Acute myeloid leukaemia
     Dosage: CYCLE 1
     Route: 058
     Dates: start: 20210304, end: 20210304
  7. AZACITIDINE [Suspect]
     Active Substance: AZACITIDINE
     Indication: Acute myeloid leukaemia
     Dosage: CYCLE 2
     Route: 042
     Dates: start: 20210305, end: 20210308
  8. AZACITIDINE [Suspect]
     Active Substance: AZACITIDINE
     Indication: Acute myeloid leukaemia
     Dosage: CYCLE 3
     Route: 065
     Dates: start: 20210411, end: 20210411
  9. AZACITIDINE [Suspect]
     Active Substance: AZACITIDINE
     Indication: Acute myeloid leukaemia
     Dosage: CYCLE 4
     Route: 065
     Dates: start: 20210412, end: 20210414
  10. AZACITIDINE [Suspect]
     Active Substance: AZACITIDINE
     Indication: Acute myeloid leukaemia
     Dosage: CYCLE 2
     Route: 065
     Dates: start: 20210418, end: 20210420
  11. AZACITIDINE [Suspect]
     Active Substance: AZACITIDINE
     Indication: Acute myeloid leukaemia
     Dosage: CYCLE 3
     Route: 065
     Dates: start: 20210509, end: 20210514
  12. AZACITIDINE [Suspect]
     Active Substance: AZACITIDINE
     Indication: Acute myeloid leukaemia
     Dosage: CYCLE 3
     Route: 065
     Dates: start: 20210516, end: 20210516
  13. AZACITIDINE [Suspect]
     Active Substance: AZACITIDINE
     Indication: Acute myeloid leukaemia
     Dosage: CYCLE 3
     Route: 065
     Dates: start: 20210517, end: 20210520
  14. AZACITIDINE [Suspect]
     Active Substance: AZACITIDINE
     Indication: Acute myeloid leukaemia
     Dosage: CYCLE 3
     Route: 065
     Dates: start: 20210523, end: 20210523
  15. AZACITIDINE [Suspect]
     Active Substance: AZACITIDINE
     Indication: Acute myeloid leukaemia
     Dosage: CYCLE 4
     Route: 065
     Dates: start: 20210613, end: 20210617
  16. AZACITIDINE [Suspect]
     Active Substance: AZACITIDINE
     Indication: Acute myeloid leukaemia
     Dosage: CYCLE 4, 110 MG
     Route: 065
     Dates: start: 20210620, end: 20210621
  17. LORATADINE [Concomitant]
     Active Substance: LORATADINE
     Indication: Prophylaxis
     Dates: start: 20210311
  18. Abrol [Concomitant]
     Indication: Premedication
     Dates: start: 20210311
  19. ZOFRAN [Concomitant]
     Active Substance: ONDANSETRON HYDROCHLORIDE
     Indication: Malignant pleural effusion
     Dates: start: 20210311
  20. REVLIMID [Concomitant]
     Active Substance: LENALIDOMIDE
     Indication: Myelodysplastic syndrome
     Dates: start: 20200111
  21. OMEPRAZOLE [Concomitant]
     Active Substance: OMEPRAZOLE
     Indication: Premedication
     Dates: start: 20210411
  22. ZOVIRAX [Concomitant]
     Active Substance: ACYCLOVIR
     Indication: Antiviral prophylaxis
     Dates: start: 20210411
  23. SULFAMETHOXAZOLE\TRIMETHOPRIM [Concomitant]
     Active Substance: SULFAMETHOXAZOLE\TRIMETHOPRIM
     Indication: Infection
     Dates: start: 20210411
  24. PFIZER-BIONTECH COVID-19 VACCINE [Concomitant]
     Active Substance: TOZINAMERAN
     Indication: COVID-19 immunisation
     Dosage: 1 IN 1 ONCE?FIRST DOSE
     Route: 030
     Dates: start: 20210523, end: 20210523
  25. PFIZER-BIONTECH COVID-19 VACCINE [Concomitant]
     Active Substance: TOZINAMERAN
     Indication: COVID-19 immunisation
     Dosage: 1 IN 1 ONCE?SECOND DOSE
     Route: 030
     Dates: start: 20210613, end: 20210613
  26. ASPIRIN [Concomitant]
     Active Substance: ASPIRIN
     Indication: Cardiovascular event prophylaxis
     Dates: start: 20220530
  27. FILGRASTIM [Concomitant]
     Active Substance: FILGRASTIM
     Indication: Neutropenia
     Dates: start: 20201229

REACTIONS (6)
  - Cerebrovascular accident [Recovered/Resolved]
  - Hypertension [Recovered/Resolved]
  - Neutropenia [Recovered/Resolved]
  - Headache [Recovered/Resolved]
  - Neutropenia [Recovered/Resolved]
  - Neutropenia [Recovered/Resolved]

NARRATIVE: CASE EVENT DATE: 20210503
